FAERS Safety Report 8319640-2 (Version None)
Quarter: 2012Q2

REPORT INFORMATION
  Report Type: 
  Country: None (occurrence: None)
  Receive Date: 20120427
  Receipt Date: 20120420
  Transmission Date: 20120825
  Serious: Yes (Other)
  Sender: FDA-Public Use
  Company Number: PHHY2011BR73115

PATIENT
  Sex: Female
  Weight: 54 kg

DRUGS (2)
  1. DIOVAN HCT [Suspect]
     Indication: HYPERTENSION
     Dosage: 1 DF, ONE TABLET ((160/12.5 MG)) DAILY IN THE MORNING
  2. DIOVAN HCT [Suspect]
     Dosage: 1 DF, DAILY (160/12.5 MG)

REACTIONS (4)
  - CHRONIC MYELOID LEUKAEMIA [None]
  - BLOOD PRESSURE INCREASED [None]
  - ARRHYTHMIA [None]
  - OEDEMA PERIPHERAL [None]
